FAERS Safety Report 24016663 (Version 3)
Quarter: 2024Q3

REPORT INFORMATION
  Report Type: Spontaneous
  Country: JP (occurrence: JP)
  Receive Date: 20240626
  Receipt Date: 20240930
  Transmission Date: 20241017
  Serious: Yes (Hospitalization)
  Sender: APELLIS PHARMACEUTICALS
  Company Number: JP-BIOVITRUM-2024-JP-008906

PATIENT

DRUGS (1)
  1. EMPAVELI [Suspect]
     Active Substance: PEGCETACOPLAN
     Indication: Paroxysmal nocturnal haemoglobinuria
     Dosage: 1080.000MG
     Route: 058

REACTIONS (10)
  - Fatigue [Recovering/Resolving]
  - Dysphagia [Recovering/Resolving]
  - Chromaturia [Unknown]
  - Injury associated with device [Unknown]
  - Blood lactate dehydrogenase increased [Recovering/Resolving]
  - Haematuria [Recovered/Resolved]
  - Haemoglobin decreased [Recovered/Resolved]
  - Injection site induration [Unknown]
  - Wrong technique in product usage process [Unknown]
  - Product dose omission in error [Unknown]
